FAERS Safety Report 5508882-7 (Version None)
Quarter: 2007Q4

REPORT INFORMATION
  Report Type: 
  Country: None (occurrence: None)
  Receive Date: 20071031
  Receipt Date: 20070814
  Transmission Date: 20080405
  Serious: Yes (Other)
  Sender: FDA-Public Use
  Company Number: 200712393BWH

PATIENT
  Age: 85 Year
  Sex: Male
  Weight: 62.1428 kg

DRUGS (1)
  1. NEXAVAR [Suspect]
     Indication: SARCOMA
     Dosage: 400 MG, BID, ORAL
     Route: 048
     Dates: start: 20070714, end: 20070718

REACTIONS (7)
  - CONSTIPATION [None]
  - DYSPHAGIA [None]
  - GLOSSODYNIA [None]
  - HAEMATURIA [None]
  - ORAL PAIN [None]
  - PHARYNGOLARYNGEAL PAIN [None]
  - WEIGHT DECREASED [None]
